FAERS Safety Report 6926231-4 (Version None)
Quarter: 2010Q3

REPORT INFORMATION
  Report Type: 
  Country: None (occurrence: None)
  Receive Date: 20100811
  Receipt Date: 20100727
  Transmission Date: 20110219
  Serious: Yes (Other)
  Sender: FDA-Public Use
  Company Number: 016218

PATIENT
  Age: 80 Year
  Sex: Male

DRUGS (1)
  1. PROVASTATIN /00501501/ (PROSTAVASIN 20) [Suspect]

REACTIONS (1)
  - PROTHROMBIN TIME PROLONGED [None]
